FAERS Safety Report 9052672 (Version 2)
Quarter: 2013Q1

REPORT INFORMATION
  Report Type: Spontaneous
  Country: US (occurrence: US)
  Receive Date: 20130207
  Receipt Date: 20130226
  Transmission Date: 20140127
  Serious: Yes (Hospitalization)
  Sender: FDA-Public Use
  Company Number: US-PFIZER INC-2013045192

PATIENT
  Age: 47 Year
  Sex: Female

DRUGS (4)
  1. XALKORI [Suspect]
     Indication: LUNG NEOPLASM MALIGNANT
     Dosage: 500 MG, 1X/DAY
  2. XALKORI [Suspect]
     Dosage: 400 MG, 1X/DAY, AT HS
     Route: 048
     Dates: start: 20121128, end: 20130118
  3. YASMIN [Concomitant]
     Dosage: DAILY
     Route: 048
  4. ADVAIR DISKUS [Concomitant]
     Dosage: 250/50 ONE PUFF PO BID

REACTIONS (7)
  - Necrotising oesophagitis [Recovering/Resolving]
  - Abdominal pain [Recovered/Resolved]
  - Nausea [Recovered/Resolved]
  - Vomiting [Recovered/Resolved]
  - Transaminases increased [Recovered/Resolved]
  - Blood alkaline phosphatase increased [Recovered/Resolved]
  - Photopsia [Unknown]
